FAERS Safety Report 5907404-6 (Version None)
Quarter: 2008Q3

REPORT INFORMATION
  Report Type: 
  Country: None (occurrence: None)
  Receive Date: 20080929
  Receipt Date: 20080915
  Transmission Date: 20090109
  Serious: Yes (Other)
  Sender: FDA-Public Use
  Company Number: 2008AL010514

PATIENT
  Age: 14 Year
  Sex: Female

DRUGS (4)
  1. ACYCLOVIR [Suspect]
     Indication: ANTIVIRAL PROPHYLAXIS
  2. BUSULFAN [Concomitant]
  3. CYCLOPHOSPHAMIDE [Concomitant]
  4. ETOPOSIDE [Concomitant]

REACTIONS (4)
  - CENTRAL NERVOUS SYSTEM LESION [None]
  - CONVULSION [None]
  - GRAFT VERSUS HOST DISEASE [None]
  - THERAPEUTIC AGENT TOXICITY [None]
